FAERS Safety Report 8290978-0 (Version None)
Quarter: 2012Q2

REPORT INFORMATION
  Report Type: 
  Country: None (occurrence: None)
  Receive Date: 20120417
  Receipt Date: 20120103
  Transmission Date: 20120825
  Serious: Yes (Other)
  Sender: FDA-Public Use
  Company Number: US-ASTRAZENECA-2011SE03202

PATIENT
  Age: 54 Year
  Sex: Female
  Weight: 158.8 kg

DRUGS (11)
  1. ASPIRIN [Concomitant]
  2. NEXIUM [Suspect]
     Indication: GASTROOESOPHAGEAL REFLUX DISEASE
     Route: 048
  3. ATIVAN [Concomitant]
     Route: 048
  4. NEXIUM [Suspect]
     Route: 048
  5. COUMADIN [Concomitant]
  6. KLONIPAN [Concomitant]
  7. LASIX [Concomitant]
  8. POTASSIUM [Concomitant]
  9. LEXAPRO [Concomitant]
  10. TOPROL-XL [Concomitant]
  11. HYDROCHLOROTHIAZIDE [Concomitant]

REACTIONS (5)
  - GASTRIC HAEMORRHAGE [None]
  - ERUCTATION [None]
  - ABDOMINAL PAIN UPPER [None]
  - GASTROINTESTINAL DISORDER [None]
  - GASTRIC INFECTION [None]
